FAERS Safety Report 4501790-X (Version None)
Quarter: 2004Q3

REPORT INFORMATION
  Report Type: 
  Country: None (occurrence: None)
  Receive Date: 20040928
  Receipt Date: 20040601
  Transmission Date: 20050211
  Serious: No
  Sender: FDA-Public Use
  Company Number: 04P-163-0262438-00

PATIENT
  Age: 61 Year
  Sex: Female
  Weight: 99.7913 kg

DRUGS (6)
  1. HUMIRA [Suspect]
     Indication: RHEUMATOID ARTHRITIS
     Dosage: 40 MG, 1 IN 2 WK, SUBCUTANEOUS
     Route: 058
     Dates: start: 20031201, end: 20040301
  2. LEFLUNOMIDE [Concomitant]
  3. ROFECOXIB [Concomitant]
  4. PREDNISONE [Concomitant]
  5. ALENDRONAE SODIUM [Concomitant]
  6. ESOMPERAZOLE [Concomitant]

REACTIONS (3)
  - INJECTION SITE BURNING [None]
  - INJECTION SITE PRURITUS [None]
  - INJECTION SITE URTICARIA [None]
